FAERS Safety Report 4911840-4 (Version None)
Quarter: 2006Q1

REPORT INFORMATION
  Report Type: 
  Country: None (occurrence: None)
  Receive Date: 20060213
  Receipt Date: 20060213
  Transmission Date: 20060701
  Serious: Yes (Hospitalization)
  Sender: FDA-Public Use
  Company Number: None

PATIENT
  Age: 42 Year
  Sex: Female
  Weight: 80.7403 kg

DRUGS (3)
  1. TAXOTERE [Suspect]
     Indication: BREAST CANCER
     Dosage: 30 MG/M2 D1,8,15 CYCLE X4 IV
     Route: 042
     Dates: start: 20051021, end: 20060120
  2. CARBOPLATIN [Suspect]
     Indication: BREAST CANCER
     Dosage: AUC 2 D1,8,15 CYCLE X 4 IV
     Route: 042
     Dates: start: 20051021, end: 20060120
  3. XELODA [Suspect]
     Indication: BREAST CANCER
     Dosage: 625 MG/M2 PO D5 - D18 CYCLE X 4
     Route: 048
     Dates: start: 20051021, end: 20060126

REACTIONS (1)
  - MASTITIS [None]
